FAERS Safety Report 8603164-9 (Version None)
Quarter: 2012Q3

REPORT INFORMATION
  Report Type: 
  Country: None (occurrence: None)
  Receive Date: 20120817
  Receipt Date: 20120815
  Transmission Date: 20120928
  Serious: No
  Sender: FDA-Public Use
  Company Number: US-TEVA-354397USA

PATIENT
  Sex: Female
  Weight: 79.45 kg

DRUGS (5)
  1. PLAN B ONE-STEP [Suspect]
     Dosage: 1.5 MILLIGRAM DAILY;
     Route: 048
     Dates: start: 20120721, end: 20120721
  2. ADDERALL [Concomitant]
     Indication: ATTENTION DEFICIT/HYPERACTIVITY DISORDER
  3. ZOLOFT [Concomitant]
     Indication: DEPRESSION
  4. CAMPRAL [Concomitant]
     Indication: ALCOHOLISM
  5. PLAN B ONE-STEP [Suspect]
     Indication: POST COITAL CONTRACEPTION
     Dosage: 1.5 MILLIGRAM DAILY;
     Route: 048
     Dates: start: 20120717, end: 20120717

REACTIONS (2)
  - MENSTRUATION IRREGULAR [None]
  - HAEMORRHAGE [None]
